FAERS Safety Report 5387143-3 (Version None)
Quarter: 2007Q3

REPORT INFORMATION
  Report Type: 
  Country: None (occurrence: None)
  Receive Date: 20070711
  Receipt Date: 20070626
  Transmission Date: 20080115
  Serious: Yes (Other)
  Sender: FDA-Public Use
  Company Number: GXKR2007US05458

PATIENT
  Age: 26 Year
  Sex: Female

DRUGS (5)
  1. BUPROPION SANDOZ  (NGX) (BUPROPION) UNKNOWN [Suspect]
  2. ALPRAZOLAM [Suspect]
  3. TOPIRAMATE [Suspect]
  4. ARIPIPRAZOLE [Suspect]
     Dosage: INCREASE IN DOSAGE
  5. PREGABALIN (PREGABALIN) [Suspect]

REACTIONS (2)
  - INTENTIONAL OVERDOSE [None]
  - NEUROLEPTIC MALIGNANT SYNDROME [None]
